FAERS Safety Report 9304185 (Version 2)
Quarter: 2013Q2

REPORT INFORMATION
  Report Type: Spontaneous
  Country: GB (occurrence: GB)
  Receive Date: 20130522
  Receipt Date: 20130529
  Transmission Date: 20140414
  Serious: Yes (Hospitalization)
  Sender: FDA-Public Use
  Company Number: GB-PFIZER INC-2002106357GB

PATIENT
  Age: 73 Year
  Sex: Male

DRUGS (7)
  1. ATENOLOL [Suspect]
     Indication: HYPERTENSION
     Dosage: 50 MG, QD
     Route: 048
     Dates: end: 20020326
  2. ATENOLOL [Suspect]
     Dosage: 100 MG, QD
     Route: 048
     Dates: start: 20020327, end: 20020413
  3. ATENOLOL [Suspect]
     Dosage: 25 MG, QD
     Route: 048
     Dates: start: 20020414
  4. ACETYLSALICYLIC ACID [Concomitant]
     Indication: RETINAL ARTERY THROMBOSIS
     Dosage: 100 MG, DAILY
     Route: 048
  5. ATORVASTATIN [Concomitant]
     Indication: HYPERCHOLESTEROLAEMIA
     Dosage: 100 MG, DAILY
     Route: 048
     Dates: start: 20020227
  6. BENDROFLUAZIDE [Concomitant]
     Indication: HYPERTENSION
     Dosage: 2.5 MG, DAILY
     Route: 048
  7. IRBESARTAN [Concomitant]
     Indication: NEPHROSCLEROSIS
     Dosage: 225 MG, DAILY
     Route: 048
     Dates: start: 20020227

REACTIONS (2)
  - Circulatory collapse [Recovering/Resolving]
  - Bradycardia [Recovering/Resolving]
